FAERS Safety Report 8856288 (Version 4)
Quarter: 2013Q1

REPORT INFORMATION
  Report Type: Spontaneous
  Country: US (occurrence: None)
  Receive Date: 20121019
  Receipt Date: 20130206
  Transmission Date: 20140127
  Serious: Yes (Other)
  Sender: FDA-Public Use
  Company Number: 2012SGN00456

PATIENT
  Age: 28 Year
  Sex: Female
  Weight: 80.7 kg

DRUGS (1)
  1. ADCETRIS [Suspect]
     Indication: SARCOMA
     Dosage: Q21D
     Route: 042
     Dates: start: 20120622, end: 20120912

REACTIONS (3)
  - Radiation pneumonitis [None]
  - Lung consolidation [None]
  - Off label use [None]
